FAERS Safety Report 9676409 (Version 1)
Quarter: 2013Q4

REPORT INFORMATION
  Report Type: Spontaneous
  Country: US (occurrence: US)
  Receive Date: 20131107
  Receipt Date: 20131107
  Transmission Date: 20140711
  Serious: Yes (Death)
  Sender: FDA-Public Use
  Company Number: US-009507513-1311USA001556

PATIENT
  Age: 58 Year
  Sex: Male

DRUGS (3)
  1. TEMODAR [Suspect]
     Dosage: 140 MG, UNK
     Route: 048
  2. TEMODAR [Suspect]
     Dosage: 20 MG, UNK
     Route: 048
  3. TEMODAR [Suspect]
     Dosage: 5 MG, UNK
     Route: 048

REACTIONS (1)
  - Death [Fatal]
